FAERS Safety Report 12459851 (Version 1)
Quarter: 2016Q2

REPORT INFORMATION
  Report Type: Spontaneous
  Country: US (occurrence: None)
  Receive Date: 20160610
  Receipt Date: 20160610
  Transmission Date: 20160815
  Serious: No
  Sender: FDA-Public Use
  Company Number: None

PATIENT
  Age: 54 Year
  Sex: Female

DRUGS (1)
  1. IBRANCE [Suspect]
     Active Substance: PALBOCICLIB
     Indication: BREAST CANCER
     Dosage: 125 MG CAP QD 21DYS,7DYO PO
     Route: 048
     Dates: start: 20150717

REACTIONS (4)
  - Alopecia [None]
  - Drug dose omission [None]
  - Memory impairment [None]
  - Fatigue [None]

NARRATIVE: CASE EVENT DATE: 2016
